FAERS Safety Report 20832648 (Version 1)
Quarter: 2022Q2

REPORT INFORMATION
  Report Type: 
  Country: None (occurrence: None)
  Receive Date: 20220516
  Receipt Date: 20220516
  Transmission Date: 20220721
  Serious: No
  Sender: FDA-Public Use
  Company Number: CA-ROCHE-2152895

PATIENT
  Age: 37 Year

DRUGS (4)
  1. OCREVUS [Suspect]
     Active Substance: OCRELIZUMAB
     Dosage: 300 MG DAY 0 AND 14, THEN 600 MG EVERY 6 MONTHS?ON 29/JUN/2018, HE AGAIN RECEIVED OCRELIZUMAB INFUSI
     Dates: start: 20180618
  2. OCREVUS [Suspect]
     Active Substance: OCRELIZUMAB
     Dates: start: 20180629
  3. BENADRYL [Suspect]
     Active Substance: DIPHENHYDRAMINE HYDROCHLORIDE
     Dates: start: 20180629
  4. NAPROXEN [Concomitant]
     Active Substance: NAPROXEN

REACTIONS (26)
  - Joint dislocation [None]
  - Balance disorder [None]
  - Somnolence [None]
  - Cough [None]
  - Rhinorrhoea [None]
  - Headache [None]
  - Pruritus [None]
  - Musculoskeletal stiffness [None]
  - Dizziness [None]
  - Abnormal sensation in eye [None]
  - Muscular weakness [None]
  - Pain in extremity [None]
  - Therapy non-responder [None]
  - Nasopharyngitis [None]
  - Hypoaesthesia [None]
  - Oropharyngeal pain [None]
  - Peripheral swelling [None]
  - Sneezing [None]
  - Myalgia [None]
  - Sleep disorder [None]
  - Muscle spasms [None]
  - Middle insomnia [None]
  - Pain in extremity [None]
  - Ill-defined disorder [None]
  - Lymphocyte count decreased [None]
  - COVID-19 [None]

NARRATIVE: CASE EVENT DATE: 20180629
